FAERS Safety Report 9492936 (Version 2)
Quarter: 2013Q3

REPORT INFORMATION
  Report Type: Spontaneous
  Country: BR (occurrence: BR)
  Receive Date: 20130902
  Receipt Date: 20130902
  Transmission Date: 20140515
  Serious: Yes (Death)
  Sender: FDA-Public Use
  Company Number: BR-AMGEN-BRASP2012054392

PATIENT
  Age: 82 Year
  Sex: Female
  Weight: 32 kg

DRUGS (6)
  1. ENBREL [Suspect]
     Indication: RHEUMATOID ARTHRITIS
     Dosage: 50 MG, ONCE WEEKLY
     Route: 058
     Dates: start: 20111207, end: 201302
  2. HARPAGOPHYTUM PROCUMBENS [Concomitant]
     Dosage: 400 MG, 2X/DAY
  3. PANTOPRAZOLE [Concomitant]
     Dosage: 40 MG, QD
  4. DEFLAZACORT [Concomitant]
     Dosage: 6 MG, QD
  5. CONDROFLEX [Concomitant]
     Dosage: UNK UNK, QD
  6. FLUXENE [Concomitant]
     Dosage: 10 MG, QD

REACTIONS (8)
  - Death [Fatal]
  - Decreased appetite [Unknown]
  - Headache [Unknown]
  - Oropharyngeal pain [Unknown]
  - Dysphagia [Unknown]
  - Nausea [Unknown]
  - Lymphadenopathy [Unknown]
  - Injection site pain [Unknown]
